FAERS Safety Report 11066624 (Version 1)
Quarter: 2015Q2

REPORT INFORMATION
  Report Type: Spontaneous
  Country: US (occurrence: None)
  Receive Date: 20150416
  Receipt Date: 20150416
  Transmission Date: 20150821
  Serious: Yes (Hospitalization)
  Sender: FDA-Public Use
  Company Number: 2014CVI00016

PATIENT
  Age: 43 Year
  Sex: Female
  Weight: 64.9 kg

DRUGS (1)
  1. CEFUROXIME. [Suspect]
     Active Substance: CEFUROXIME
     Indication: PROPHYLAXIS
     Route: 042
     Dates: start: 19901010, end: 19901011

REACTIONS (3)
  - Vomiting [None]
  - Overdose [None]
  - Nausea [None]

NARRATIVE: CASE EVENT DATE: 19901010
